FAERS Safety Report 9384797 (Version 2)
Quarter: 2013Q3

REPORT INFORMATION
  Report Type: Spontaneous
  Country: JP (occurrence: JP)
  Receive Date: 20130705
  Receipt Date: 20130821
  Transmission Date: 20140515
  Serious: Yes (Other)
  Sender: FDA-Public Use
  Company Number: JP-PFIZER INC-2013163422

PATIENT
  Age: 64 Year
  Sex: Male
  Weight: 47.2 kg

DRUGS (6)
  1. LYRICA [Suspect]
     Indication: NEURALGIA
     Dosage: 150 MG/DAY
     Route: 048
  2. LYRICA [Suspect]
     Indication: PAIN IN EXTREMITY
  3. PRORENAL [Suspect]
     Dosage: UNK
  4. ASPIRIN [Concomitant]
     Dosage: 81 MG/DAY
     Route: 048
  5. VALPROIC ACID [Concomitant]
     Dosage: 400 MG/DAY
     Route: 048
  6. CANDESARTAN [Concomitant]
     Dosage: 12 MG/DAY
     Route: 048

REACTIONS (4)
  - Clostridium difficile colitis [Recovering/Resolving]
  - Altered state of consciousness [Recovering/Resolving]
  - Blood pressure decreased [Unknown]
  - Dizziness [Recovering/Resolving]
